FAERS Safety Report 5716077-7 (Version None)
Quarter: 2008Q2

REPORT INFORMATION
  Report Type: 
  Country: None (occurrence: None)
  Receive Date: 20080423
  Receipt Date: 20080423
  Transmission Date: 20081010
  Serious: Yes (Death)
  Sender: FDA-Public Use
  Company Number: None

PATIENT
  Age: 50 Year
  Sex: Female
  Weight: 72.5755 kg

DRUGS (1)
  1. BUPIVACAINE [Suspect]
     Indication: PROCEDURAL PAIN
     Dosage: 0.5% 400 ML CONTINOUS 4 ML/HR SQ 4-5 DAYS
     Route: 058
     Dates: start: 20080123, end: 20080129

REACTIONS (2)
  - DRUG TOXICITY [None]
  - PULMONARY CONGESTION [None]
